FAERS Safety Report 6729007-6 (Version None)
Quarter: 2010Q2

REPORT INFORMATION
  Report Type: 
  Country: None (occurrence: None)
  Receive Date: 20100517
  Receipt Date: 20100323
  Transmission Date: 20101027
  Serious: No
  Sender: FDA-Public Use
  Company Number: US-ABBOTT-10P-163-0634016-00

PATIENT
  Sex: Female

DRUGS (2)
  1. SIMCOR [Suspect]
     Indication: BLOOD CHOLESTEROL INCREASED
  2. SIMCOR [Suspect]
     Dosage: SAMPLE PACK (DOSE UNKNOWN)

REACTIONS (2)
  - PRURITUS [None]
  - URTICARIA [None]
